FAERS Safety Report 5954428-9 (Version None)
Quarter: 2008Q4

REPORT INFORMATION
  Report Type: 
  Country: None (occurrence: None)
  Receive Date: 20081117
  Receipt Date: 20081104
  Transmission Date: 20090506
  Serious: No
  Sender: FDA-Public Use
  Company Number: GB-PFIZER INC-2008090441

PATIENT
  Age: 63 Year
  Sex: Male
  Weight: 80 kg

DRUGS (3)
  1. IRINOTECAN HCL [Suspect]
     Indication: COLON CANCER METASTATIC
     Route: 042
     Dates: start: 20080718, end: 20080919
  2. OXALIPLATIN [Suspect]
  3. CAPECITABINE [Suspect]

REACTIONS (1)
  - NO ADVERSE EVENT [None]
